FAERS Safety Report 15849881 (Version 3)
Quarter: 2020Q2

REPORT INFORMATION
  Report Type: Spontaneous
  Country: CA (occurrence: CA)
  Receive Date: 20190121
  Receipt Date: 20200624
  Transmission Date: 20200713
  Serious: Yes (Hospitalization, Other)
  Sender: FDA-Public Use
  Company Number: CA-PFM-2019-00381

PATIENT
  Age: 20 Month
  Sex: Female
  Weight: 2.76 kg

DRUGS (7)
  1. PROPRANOLOL [Suspect]
     Active Substance: PROPRANOLOL HYDROCHLORIDE
     Indication: NODAL ARRHYTHMIA
     Dosage: 2.0 MG/KG, QD (1/DAY)
     Route: 065
  2. AMIODARONE [Concomitant]
     Active Substance: AMIODARONE
     Indication: NODAL ARRHYTHMIA
     Route: 065
  3. GLUCAGON. [Suspect]
     Active Substance: GLUCAGON
     Indication: PRODUCT USED FOR UNKNOWN INDICATION
     Dosage: 0.12MG/KG, 1 EVERY (EXCESSIVE DOSE GIVEN BY ERROR)
     Route: 065
  4. DIGOXIN. [Concomitant]
     Active Substance: DIGOXIN
     Indication: NODAL ARRHYTHMIA
     Dosage: UNK
     Route: 065
  5. PROPRANOLOL [Suspect]
     Active Substance: PROPRANOLOL HYDROCHLORIDE
     Indication: OFF LABEL USE
     Dosage: 7.5 MG /KG DAILY
  6. PROPRANOLOL [Suspect]
     Active Substance: PROPRANOLOL HYDROCHLORIDE
     Dosage: 5 MG/KG 1 EVERY 1 DAY
  7. PROPRANOLOL [Suspect]
     Active Substance: PROPRANOLOL HYDROCHLORIDE
     Dosage: 10 MG/KG 1 EVERY 1 DAY

REACTIONS (11)
  - Bradycardia [Unknown]
  - Hypoglycaemic seizure [Recovered/Resolved]
  - Seizure [Unknown]
  - Product use in unapproved indication [Unknown]
  - Medication error [Unknown]
  - Pneumonia [Unknown]
  - Altered state of consciousness [Unknown]
  - Hypothermia [Unknown]
  - Off label use [Unknown]
  - Bronchiolitis [Unknown]
  - Urine ketone body present [Recovered/Resolved]
